FAERS Safety Report 6813780-2 (Version None)
Quarter: 2010Q3

REPORT INFORMATION
  Report Type: 
  Country: None (occurrence: None)
  Receive Date: 20100701
  Receipt Date: 20100623
  Transmission Date: 20110219
  Serious: Yes (Other)
  Sender: FDA-Public Use
  Company Number: US-AMGEN-QUU420173

PATIENT
  Sex: Male
  Weight: 73.3 kg

DRUGS (15)
  1. EPOGEN [Suspect]
     Indication: DIALYSIS
     Route: 058
     Dates: start: 20090101
  2. DIOVAN [Concomitant]
     Route: 048
     Dates: start: 20100326, end: 20100330
  3. ATENOLOL [Concomitant]
     Route: 048
     Dates: start: 20100326
  4. AMLODIPINE [Concomitant]
     Route: 048
     Dates: start: 20100326, end: 20100330
  5. ZIDOVUDINE [Concomitant]
     Route: 048
     Dates: start: 20100326, end: 20100611
  6. VALGANCICLOVIR [Concomitant]
     Route: 048
     Dates: start: 20100326, end: 20100611
  7. MAGNESIUM OXIDE [Concomitant]
     Route: 048
     Dates: start: 20100326
  8. PREDNISONE TAB [Concomitant]
     Route: 048
     Dates: start: 20100326
  9. KEPPRA [Concomitant]
     Route: 048
     Dates: start: 20100326
  10. MEVACOR [Concomitant]
     Route: 048
     Dates: start: 20100326, end: 20100611
  11. DOCUSATE [Concomitant]
     Route: 048
     Dates: start: 20100326
  12. PRILOSEC [Concomitant]
     Route: 048
     Dates: start: 20100326
  13. HEPARIN [Concomitant]
     Route: 042
     Dates: start: 20100330, end: 20100420
  14. ZEMPLAR [Concomitant]
     Route: 048
     Dates: start: 20100405
  15. SEVELAMER [Concomitant]
     Route: 048
     Dates: start: 20100326

REACTIONS (3)
  - GENERAL PHYSICAL HEALTH DETERIORATION [None]
  - HAEMOGLOBIN DECREASED [None]
  - THERAPEUTIC RESPONSE DECREASED [None]
